FAERS Safety Report 9652104 (Version 1)
Quarter: 2013Q4

REPORT INFORMATION
  Report Type: Spontaneous
  Country: US (occurrence: None)
  Receive Date: 20131028
  Receipt Date: 20131028
  Transmission Date: 20140711
  Serious: Yes (Hospitalization)
  Sender: FDA-Public Use
  Company Number: None

PATIENT
  Age: 85 Year
  Sex: Male
  Weight: 111.5 kg

DRUGS (1)
  1. ENOXAPARIN [Suspect]
     Indication: PULMONARY EMBOLISM
     Dates: start: 20130927, end: 20131007

REACTIONS (4)
  - Anticoagulation drug level below therapeutic [None]
  - Abdominal pain [None]
  - Faecaloma [None]
  - Haematoma [None]
